FAERS Safety Report 6516560-0 (Version None)
Quarter: 2009Q4

REPORT INFORMATION
  Report Type: 
  Country: None (occurrence: None)
  Receive Date: 20091223
  Receipt Date: 20091211
  Transmission Date: 20100525
  Serious: Yes (Hospitalization, Other)
  Sender: FDA-Public Use
  Company Number: HU-BAYER-200930743GPV

PATIENT
  Age: 66 Year
  Sex: Male

DRUGS (15)
  1. ULTRAVIST 300 [Suspect]
     Indication: COMPUTERISED TOMOGRAM THORAX
     Route: 042
     Dates: start: 20090828, end: 20090828
  2. CORDARONE [Suspect]
     Indication: DRUG USE FOR UNKNOWN INDICATION
     Dosage: TOTAL DAILY DOSE: 1 DF
  3. BUVENTOL [Concomitant]
     Dosage: TOTAL DAILY DOSE: 3 DF
  4. SPIRIVA [Concomitant]
     Dosage: TOTAL DAILY DOSE: 1 DF
  5. PLAVIX [Concomitant]
     Dosage: TOTAL DAILY DOSE: 1 DF
  6. SORTIS [Concomitant]
     Dosage: TOTAL DAILY DOSE: 1 DF
  7. RENITEC [Concomitant]
     Dosage: TOTAL DAILY DOSE: 10 MG
  8. TALLITON [Concomitant]
     Dosage: TOTAL DAILY DOSE: 25 MG
  9. NEXIUM [Concomitant]
     Dosage: TOTAL DAILY DOSE: 1 DF
  10. VEROSPIRON [Concomitant]
     Dosage: TOTAL DAILY DOSE: 25 MG
  11. FURON [Concomitant]
     Dosage: TOTAL DAILY DOSE: 1 DF
  12. KALIUM [Concomitant]
     Dosage: TOTAL DAILY DOSE: 1 DF
  13. MAGNE B6 [Concomitant]
  14. RETAFYLLIN [Concomitant]
     Dosage: TOTAL DAILY DOSE: 600 MG
  15. SYNCUMAR [Concomitant]
     Dosage: 2.5 - 2.5 - 2 MG

REACTIONS (8)
  - ANAPHYLACTIC SHOCK [None]
  - BLOOD PRESSURE SYSTOLIC DECREASED [None]
  - HYPERHIDROSIS [None]
  - LOSS OF CONSCIOUSNESS [None]
  - LUNG INFILTRATION [None]
  - MALAISE [None]
  - THYROTOXIC CRISIS [None]
  - URINARY INCONTINENCE [None]
